FAERS Safety Report 16483710 (Version 1)
Quarter: 2019Q2

REPORT INFORMATION
  Report Type: Spontaneous
  Country: JP (occurrence: JP)
  Receive Date: 20190627
  Receipt Date: 20190627
  Transmission Date: 20190711
  Serious: Yes (Hospitalization)
  Sender: FDA-Public Use
  Company Number: JP-NOVOPROD-669139

PATIENT
  Age: 29 Year
  Sex: Female
  Weight: 75 kg

DRUGS (6)
  1. INSULIN ASPART [Suspect]
     Active Substance: INSULIN ASPART
     Dosage: 90 IU, QD
     Route: 058
  2. LEVEMIR [Suspect]
     Active Substance: INSULIN DETEMIR
     Dosage: 76 IU, QD (38-0-38IU/DAY, AT THE 31ST WEEK OF GESTATION)
     Route: 058
  3. INSULIN ASPART [Suspect]
     Active Substance: INSULIN ASPART
     Dosage: 318 IU, QD (106-106-106IU/DAY, AT 31ST GESTATIONAL WEEK)
     Route: 058
  4. INSULIN ASPART [Suspect]
     Active Substance: INSULIN ASPART
     Indication: TYPE 2 DIABETES MELLITUS
     Dosage: UNK (STARTED INTENSIVE INSULIN THERAPY)
     Route: 058
  5. LEVEMIR [Suspect]
     Active Substance: INSULIN DETEMIR
     Indication: TYPE 2 DIABETES MELLITUS
     Dosage: UNK (STARTED INTENSIVE INSULIN THERAPY)
     Route: 058
  6. LEVEMIR [Suspect]
     Active Substance: INSULIN DETEMIR
     Dosage: 20 IU, QD (10-0-10 UNITS)
     Route: 058

REACTIONS (3)
  - Gestational hypertension [Unknown]
  - Weight increased [Unknown]
  - Exposure during pregnancy [Recovered/Resolved]
